FAERS Safety Report 21407292 (Version 2)
Quarter: 2023Q2

REPORT INFORMATION
  Report Type: Report from Study
  Country: FR (occurrence: FR)
  Receive Date: 20221004
  Receipt Date: 20230617
  Transmission Date: 20230722
  Serious: Yes (Hospitalization)
  Sender: FDA-Public Use
  Company Number: FR-AMGEN-FRACT2022169625

PATIENT
  Age: 64 Year
  Sex: Female
  Weight: 56.5 kg

DRUGS (16)
  1. PANITUMUMAB [Suspect]
     Active Substance: PANITUMUMAB
     Indication: Adenocarcinoma of colon
     Dosage: 350 MILLIGRAM/ (CYCLE 3) CUMULATIVE DOSE SINCE THE FIRST ADMINISTRATION: 1060 MG
     Route: 040
     Dates: start: 20220802
  2. OXALIPLATIN [Suspect]
     Active Substance: OXALIPLATIN
     Indication: Colorectal cancer
     Dosage: 135 MILLIGRAM (CYCLE 3) CUMULATIVE DOSE SINCE THE FIRST ADMINISTRATION: 410 MG
     Route: 040
     Dates: start: 20220802, end: 20220914
  3. LEUCOVORIN CALCIUM [Suspect]
     Active Substance: LEUCOVORIN CALCIUM
     Indication: Colorectal cancer
     Dosage: 320 MILLIGRAM (CYCLE 3) CUMULATIVE DOSE SINCE THE FIRST ADMINISTRATION: 960 MG
     Route: 040
     Dates: start: 20220802, end: 20220914
  4. IRINOTECAN [Suspect]
     Active Substance: IRINOTECAN
     Indication: Colorectal cancer
     Dosage: 120 MILLIGRAM (CYCLE 3) CUMULATIVE DOSE SINCE THE FIRST ADMINISTRATION: 480 MG
     Route: 040
     Dates: start: 20220802, end: 20220914
  5. FLUOROURACIL [Suspect]
     Active Substance: FLUOROURACIL
     Indication: Colorectal cancer
     Dosage: 640 MILLIGRAM (BOLUS) CUMULATIVE DOSE SINCE THE FIRST ADMINISTRATION: 1290 MG
     Route: 040
     Dates: start: 20220802
  6. FLUOROURACIL [Suspect]
     Active Substance: FLUOROURACIL
     Dosage: 3800 MILLIGRAM (IV CONTINUOUS)/ CUMULATIVE DOSE SINCE THE FIRST ADMINISTRATION: 11600 MG
     Route: 040
     Dates: start: 20220802
  7. POTASSIUM CHLORIDE [Concomitant]
     Active Substance: POTASSIUM CHLORIDE
     Indication: Hypokalaemia
     Dosage: UNK
     Route: 048
     Dates: start: 20220314
  8. ATORVASTATIN [Concomitant]
     Active Substance: ATORVASTATIN
     Dosage: 40 MILLIGRAM, QD
  9. KARDEGIC [Concomitant]
     Active Substance: ASPIRIN DL-LYSINE
     Dosage: 75 MILLIGRAM, QD
  10. IMODIUM [Concomitant]
     Active Substance: LOPERAMIDE HYDROCHLORIDE
     Dosage: 2 MILLIGRAM,6/DAY
  11. IMODIUM [Concomitant]
     Active Substance: LOPERAMIDE HYDROCHLORIDE
     Dosage: INCREASE IN IMODIUM TABLETS 2X4/DAYS TO BE OPENED
  12. DOXYCYCLINE [Concomitant]
     Active Substance: DOXYCYCLINE
     Dosage: 100 MILLIGRAM, QD
  13. GLICLAZIDE [Concomitant]
     Active Substance: GLICLAZIDE
     Dosage: 30 MILLIGRAM, QD
  14. JANUVIA [Concomitant]
     Active Substance: SITAGLIPTIN PHOSPHATE
     Dosage: 100 MILLIGRAM, QD
  15. TAMSULOSIN [Concomitant]
     Active Substance: TAMSULOSIN
     Dosage: 04 MILLIGRAM, QD
  16. TOUJEO [Concomitant]
     Active Substance: INSULIN GLARGINE
     Dosage: 12 UNIT, QD/ 12 UNITS IN THE EVENING

REACTIONS (1)
  - Post procedural complication [Recovered/Resolved]

NARRATIVE: CASE EVENT DATE: 20220915
